FAERS Safety Report 13508246 (Version 2)
Quarter: 2017Q2

REPORT INFORMATION
  Report Type: Spontaneous
  Country: JP (occurrence: JP)
  Receive Date: 20170503
  Receipt Date: 20170519
  Transmission Date: 20170830
  Serious: Yes (Other)
  Sender: FDA-Public Use
  Company Number: PHJP2017JP014971

PATIENT
  Age: 78 Year
  Sex: Female

DRUGS (3)
  1. EXELON PATCH [Suspect]
     Active Substance: RIVASTIGMINE
     Dosage: 18 MG PRODUCT X 7 OR 8 DF QD
     Route: 062
  2. EXELON PATCH [Suspect]
     Active Substance: RIVASTIGMINE
     Dosage: 18 MG, QD (PATCH 10, 9.5 MG/24H)
     Route: 062
  3. EXELON PATCH [Suspect]
     Active Substance: RIVASTIGMINE
     Indication: DEMENTIA ALZHEIMER^S TYPE
     Dosage: 18 MG, QD (PATCH 10, 9.5 MG/24H)
     Route: 062

REACTIONS (2)
  - Depressed level of consciousness [Recovered/Resolved]
  - Incorrect dose administered [Recovered/Resolved]
